FAERS Safety Report 6979002-7 (Version None)
Quarter: 2010Q3

REPORT INFORMATION
  Report Type: 
  Country: None (occurrence: None)
  Receive Date: 20100913
  Receipt Date: 20100908
  Transmission Date: 20110219
  Serious: Yes (Other)
  Sender: FDA-Public Use
  Company Number: US-BRISTOL-MYERS SQUIBB COMPANY-15276660

PATIENT
  Sex: Male

DRUGS (2)
  1. ONGLYZA [Suspect]
     Dosage: RECEIVED FOR 2 WEEKS
  2. METFORMIN [Concomitant]

REACTIONS (3)
  - ANGIOEDEMA [None]
  - RASH [None]
  - URTICARIA [None]
